FAERS Safety Report 20050491 (Version 1)
Quarter: 2021Q4

REPORT INFORMATION
  Report Type: Spontaneous
  Country: CN (occurrence: CN)
  Receive Date: 20211109
  Receipt Date: 20211109
  Transmission Date: 20220303
  Serious: Yes (Other)
  Sender: FDA-Public Use
  Company Number: CN-BAXTER-2021BAX034714

PATIENT
  Age: 40 Year
  Sex: Female
  Weight: 57.5 kg

DRUGS (9)
  1. CYCLOPHOSPHAMIDE [Suspect]
     Active Substance: CYCLOPHOSPHAMIDE
     Indication: Breast cancer
     Dosage: CYCLOPHOSPHAMIDE FOR INJECTION 0.996G + 0.9% SODIUM CHLORIDE INJECTION 100ML
     Route: 041
     Dates: start: 20211008, end: 20211008
  2. CYCLOPHOSPHAMIDE [Suspect]
     Active Substance: CYCLOPHOSPHAMIDE
     Dosage: CYCLOPHOSPHAMIDE FOR INJECTION + 0.9% SODIUM CHLORIDE INJECTION, DOSE REINTRODUCED
     Route: 041
  3. SODIUM CHLORIDE [Suspect]
     Active Substance: SODIUM CHLORIDE
     Indication: Medication dilution
     Dosage: CYCLOPHOSPHAMIDE FOR INJECTION 0.996G + 0.9% SODIUM CHLORIDE INJECTION 100ML
     Route: 041
     Dates: start: 20211008, end: 20211008
  4. SODIUM CHLORIDE [Suspect]
     Active Substance: SODIUM CHLORIDE
     Dosage: CYCLOPHOSPHAMIDE FOR INJECTION + 0.9% SODIUM CHLORIDE INJECTION, DOSE REINTRODUCED
     Route: 041
  5. DOXORUBICIN HYDROCHLORIDE [Suspect]
     Active Substance: DOXORUBICIN HYDROCHLORIDE
     Indication: Breast cancer
     Dosage: DOXORUBICIN HYDROCHLORIDE FOR INJECTION 100 MG + STERILE WATER FOR INJECTION 50ML
     Route: 041
     Dates: start: 20211008, end: 20211008
  6. DOXORUBICIN HYDROCHLORIDE [Suspect]
     Active Substance: DOXORUBICIN HYDROCHLORIDE
     Dosage: DOXORUBICIN HYDROCHLORIDE FOR INJECTION + STERILE WATER FOR INJECTION, DOSE REINTRODUCED
     Route: 041
  7. WATER [Suspect]
     Active Substance: WATER
     Indication: Medication dilution
     Dosage: DOXORUBICIN HYDROCHLORIDE FOR INJECTION 100 MG + STERILE WATER FOR INJECTION 50ML
     Route: 041
     Dates: start: 20211008, end: 20211008
  8. WATER [Suspect]
     Active Substance: WATER
     Dosage: DOXORUBICIN HYDROCHLORIDE FOR INJECTION + STERILE WATER FOR INJECTION, DOSE REINTRODUCED
     Route: 041
  9. GRANULOCYTE COLONY-STIMULATING FACTOR NOS [Concomitant]
     Active Substance: GRANULOCYTE COLONY-STIMULATING FACTOR NOS
     Indication: Prophylaxis
     Route: 058
     Dates: start: 20211010, end: 20211012

REACTIONS (3)
  - White blood cell count decreased [Recovering/Resolving]
  - Neutrophil count decreased [Recovering/Resolving]
  - Pyrexia [Recovering/Resolving]

NARRATIVE: CASE EVENT DATE: 20211016
